FAERS Safety Report 19722512 (Version 1)
Quarter: 2021Q3

REPORT INFORMATION
  Report Type: Spontaneous
  Country: US (occurrence: US)
  Receive Date: 20210819
  Receipt Date: 20210819
  Transmission Date: 20211014
  Serious: No
  Sender: FDA-Public Use
  Company Number: US-ASTRAZENECA-2021A647441

PATIENT
  Age: 24946 Day
  Sex: Female
  Weight: 81.6 kg

DRUGS (1)
  1. BYDUREON BCISE [Suspect]
     Active Substance: EXENATIDE
     Indication: GLYCOSYLATED HAEMOGLOBIN INCREASED
     Route: 058
     Dates: start: 20210725

REACTIONS (3)
  - Injection site pain [Recovered/Resolved]
  - Injection site bruising [Not Recovered/Not Resolved]
  - Injection site injury [Recovered/Resolved]

NARRATIVE: CASE EVENT DATE: 20210725
